FAERS Safety Report 8796750 (Version 2)
Quarter: 2012Q4

REPORT INFORMATION
  Report Type: 
  Country: US (occurrence: US)
  Receive Date: 20120917
  Receipt Date: 20121112
  Transmission Date: 20130627
  Serious: Yes (Death)
  Sender: FDA-Public Use
  Company Number: US-ROCHE-1128017

PATIENT
  Sex: Female

DRUGS (2)
  1. AVASTIN [Suspect]
     Indication: MALIGNANT MELANOMA
     Dosage: 10 mg/kg
     Route: 042
     Dates: start: 20100209, end: 20100323
  2. TAXOL [Concomitant]

REACTIONS (1)
  - Disease progression [Fatal]
